FAERS Safety Report 7285708 (Version 3)
Quarter: 2018Q4

REPORT INFORMATION
  Report Type: Spontaneous
  Country: FR (occurrence: FR)
  Receive Date: 20100219
  Receipt Date: 20181011
  Transmission Date: 20190205
  Serious: Yes (Death, Disabling)
  Sender: FDA-Public Use
  Company Number: FR-PFIZER INC-2010016696

PATIENT
  Age: 81 Year
  Sex: Female

DRUGS (5)
  1. CORTANCYL [Suspect]
     Active Substance: PREDNISONE
     Dosage: UNK
     Dates: start: 20091012
  2. CORTANCYL [Suspect]
     Active Substance: PREDNISONE
     Dosage: UNK
     Route: 048
     Dates: start: 200909
  3. SUTENT [Suspect]
     Active Substance: SUNITINIB MALATE
     Indication: METASTATIC RENAL CELL CARCINOMA
     Dosage: 50 MG, 1X/DAY
     Route: 048
     Dates: start: 20090910, end: 20091002
  4. CORTANCYL [Suspect]
     Active Substance: PREDNISONE
     Dosage: UNK
     Dates: start: 20091002
  5. SUTENT [Suspect]
     Active Substance: SUNITINIB MALATE
     Dosage: 37.5 MG DAILY, 4 WEEKS ON/2 WEEKS OFF
     Route: 048
     Dates: start: 20091012, end: 20091118

REACTIONS (1)
  - Osteonecrosis of jaw [Not Recovered/Not Resolved]

NARRATIVE: CASE EVENT DATE: 20091112
